FAERS Safety Report 6683118-2 (Version None)
Quarter: 2010Q2

REPORT INFORMATION
  Report Type: 
  Country: None (occurrence: None)
  Receive Date: 20100413
  Receipt Date: 20100330
  Transmission Date: 20101027
  Serious: Yes (Hospitalization)
  Sender: FDA-Public Use
  Company Number: 009481

PATIENT
  Sex: Female
  Weight: 8.4 kg

DRUGS (4)
  1. LEVETIRACETAM [Suspect]
     Indication: EPILEPSY
     Dosage: 25 MG BID ORAL, 50 MG BID ORAL
     Route: 048
     Dates: start: 20090320, end: 20090329
  2. LEVETIRACETAM [Suspect]
     Indication: EPILEPSY
     Dosage: 25 MG BID ORAL, 50 MG BID ORAL
     Route: 048
     Dates: start: 20090330
  3. VIGABATRIN [Concomitant]
  4. LAMOTRIGINE [Concomitant]

REACTIONS (1)
  - RENAL FAILURE ACUTE [None]
